FAERS Safety Report 8360654-4 (Version None)
Quarter: 2012Q2

REPORT INFORMATION
  Report Type: 
  Country: None (occurrence: None)
  Receive Date: 20120514
  Receipt Date: 20120514
  Transmission Date: 20120825
  Serious: Yes (Death)
  Sender: FDA-Public Use
  Company Number: None

PATIENT
  Age: 77 Year
  Sex: Female
  Weight: 57.5 kg

DRUGS (1)
  1. PRADAXA 150 MG BOEHRINGER INGELHELM [Suspect]
     Indication: ATRIAL FIBRILLATION
     Dosage: 150 MG TWICE DAILY BY MOUTH  UNKNOWN, 5/10  ONLY IN HOSPITAL
     Route: 048

REACTIONS (1)
  - CARDIO-RESPIRATORY ARREST [None]
